FAERS Safety Report 8422753-8 (Version None)
Quarter: 2012Q2

REPORT INFORMATION
  Report Type: 
  Country: None (occurrence: None)
  Receive Date: 20120608
  Receipt Date: 20120531
  Transmission Date: 20120825
  Serious: Yes (Disabling)
  Sender: FDA-Public Use
  Company Number: IT-NOVOPROD-350206

PATIENT
  Age: 63 Year
  Sex: Male

DRUGS (3)
  1. VICTOZA [Suspect]
     Indication: TYPE 2 DIABETES MELLITUS
     Dosage: 1.2 MG, QD
     Route: 058
     Dates: start: 20110812
  2. PENTACOL [Concomitant]
     Dosage: 6 TAB, QD
     Route: 048
     Dates: start: 20070818
  3. METFORMIN HCL [Concomitant]
     Dosage: 2 TAB, QD
     Dates: start: 20050504

REACTIONS (1)
  - CEREBRAL HAEMORRHAGE [None]
